FAERS Safety Report 7677235-8 (Version None)
Quarter: 2011Q3

REPORT INFORMATION
  Report Type: 
  Country: None (occurrence: None)
  Receive Date: 20110810
  Receipt Date: 20110810
  Transmission Date: 20111222
  Serious: Yes (Other)
  Sender: FDA-Public Use
  Company Number: None

PATIENT
  Age: 58 Year
  Sex: Female
  Weight: 81.1939 kg

DRUGS (2)
  1. LYRICA [Suspect]
     Indication: NEURALGIA
     Dosage: 50MG 3 TIMES A DAY ORAL
     Route: 048
     Dates: start: 20110719
  2. LYRICA [Suspect]
     Indication: FIBROMYALGIA
     Dosage: 50MG 3 TIMES A DAY ORAL
     Route: 048
     Dates: start: 20110719

REACTIONS (5)
  - VOMITING [None]
  - TREMOR [None]
  - DIZZINESS [None]
  - DRUG HYPERSENSITIVITY [None]
  - NAUSEA [None]
